FAERS Safety Report 4715655-1 (Version None)
Quarter: 2005Q3

REPORT INFORMATION
  Report Type: 
  Country: None (occurrence: None)
  Receive Date: 20050718
  Receipt Date: 20050712
  Transmission Date: 20060218
  Serious: Yes (Hospitalization)
  Sender: FDA-Public Use
  Company Number: 2005UW10321

PATIENT
  Age: 56 Year
  Sex: Male

DRUGS (12)
  1. SEROQUEL [Suspect]
     Route: 048
  2. STUDY MEDICATION [Suspect]
     Indication: GLIOBLASTOMA
     Dates: start: 20050523, end: 20050527
  3. KEPPRA [Concomitant]
  4. DILANTIN [Concomitant]
  5. EFFEXOR [Concomitant]
  6. ZANTAC [Concomitant]
  7. RISPERDAL [Concomitant]
  8. BACLOFEN [Concomitant]
  9. ATACAND HCT [Concomitant]
  10. DITROPAN XL [Concomitant]
  11. ATIVAN [Concomitant]
  12. DECADRON [Concomitant]

REACTIONS (4)
  - BRAIN SCAN ABNORMAL [None]
  - DEPRESSED LEVEL OF CONSCIOUSNESS [None]
  - SOMNOLENCE [None]
  - URINARY TRACT INFECTION BACTERIAL [None]
